FAERS Safety Report 7394458-6 (Version None)
Quarter: 2011Q2

REPORT INFORMATION
  Report Type: 
  Country: None (occurrence: None)
  Receive Date: 20110405
  Receipt Date: 20110322
  Transmission Date: 20111010
  Serious: Yes (Hospitalization)
  Sender: FDA-Public Use
  Company Number: PHHY2011JP23947

PATIENT
  Age: 57 Year
  Sex: Male

DRUGS (5)
  1. BENZALIN [Concomitant]
     Indication: BIPOLAR I DISORDER
     Dosage: UNK UKN, UNK
     Route: 048
  2. AMOBAN [Concomitant]
     Indication: BIPOLAR I DISORDER
     Dosage: UNK UKN, UNK
     Route: 048
  3. TEGRETOL [Suspect]
     Indication: BIPOLAR I DISORDER
     Dosage: 300 MG, QD
     Route: 048
     Dates: start: 19960101, end: 20110128
  4. TEGRETOL [Suspect]
     Dosage: 400 MG, QD
     Dates: start: 20080101
  5. DOGMATYL [Concomitant]
     Dosage: UNK UKN, UNK
     Route: 048
     Dates: start: 20080101

REACTIONS (6)
  - CHEST DISCOMFORT [None]
  - DEHYDRATION [None]
  - GAIT DISTURBANCE [None]
  - MUSCULOSKELETAL STIFFNESS [None]
  - FATIGUE [None]
  - DYSKINESIA [None]
